FAERS Safety Report 25835810 (Version 2)
Quarter: 2025Q4

REPORT INFORMATION
  Report Type: Spontaneous
  Country: US (occurrence: US)
  Receive Date: 20250923
  Receipt Date: 20251029
  Transmission Date: 20260118
  Serious: No
  Sender: CIPLA
  Company Number: US-CIPLA LTD.-2025US11612

PATIENT

DRUGS (4)
  1. ALBUTEROL [Suspect]
     Active Substance: ALBUTEROL
     Indication: Product used for unknown indication
     Dosage: 90 MICROGRAM (1 PUFF), PRN (EVERY 4-6 HOURS AS NEEDED) (REGULAR USER)
  2. ALBUTEROL [Suspect]
     Active Substance: ALBUTEROL
     Dosage: 90 MICROGRAM (1 PUFF), PRN (EVERY 4-6 HOURS AS NEEDED) (OLD INHALER)
     Dates: start: 20241216
  3. ALBUTEROL [Suspect]
     Active Substance: ALBUTEROL
     Dosage: 90 MICROGRAM (1 PUFF), PRN (EVERY 4-6 HOURS AS NEEDED) (NEW INHALER)
     Dates: start: 202412
  4. ALBUTEROL [Suspect]
     Active Substance: ALBUTEROL
     Dosage: 90 MICROGRAM (1 PUFF), PRN (EVERY 4-6 HOURS AS NEEDED) (REPLACEDINHALER)
     Dates: start: 2025

REACTIONS (3)
  - Drug dose omission by device [Unknown]
  - Device delivery system issue [Unknown]
  - Wrong technique in product usage process [Unknown]

NARRATIVE: CASE EVENT DATE: 20250801
